FAERS Safety Report 8623390-2 (Version None)
Quarter: 2012Q3

REPORT INFORMATION
  Report Type: 
  Country: None (occurrence: None)
  Receive Date: 20120824
  Receipt Date: 20120824
  Transmission Date: 20120928
  Serious: Yes (Hospitalization)
  Sender: FDA-Public Use
  Company Number: None

PATIENT
  Age: 52 Year
  Sex: Male
  Weight: 200 kg

DRUGS (1)
  1. DABIGATRAN [Suspect]
     Dosage: 150MG, BID, PO
     Route: 048

REACTIONS (3)
  - SKIN ULCER [None]
  - WOUND [None]
  - HAEMORRHAGE [None]
